FAERS Safety Report 19746018 (Version 3)
Quarter: 2022Q1

REPORT INFORMATION
  Report Type: Spontaneous
  Country: US (occurrence: None)
  Receive Date: 20210825
  Receipt Date: 20220222
  Transmission Date: 20220423
  Serious: Yes (Other)
  Sender: FDA-Public Use
  Company Number: 2021A687561

PATIENT
  Age: 56 Year
  Sex: Male
  Weight: 111.6 kg

DRUGS (29)
  1. NEXIUM [Suspect]
     Active Substance: ESOMEPRAZOLE MAGNESIUM
     Indication: Dyspepsia
     Dosage: FOR VARIOUS DATES AND YEARS
     Route: 048
  2. NEXIUM [Suspect]
     Active Substance: ESOMEPRAZOLE MAGNESIUM
     Indication: Dyspepsia
     Route: 048
     Dates: start: 2007, end: 2009
  3. NEXIUM 24HR [Suspect]
     Active Substance: ESOMEPRAZOLE MAGNESIUM
     Indication: Dyspepsia
     Dosage: FOR VARIOUS DATES AND YEARS
     Route: 048
  4. PRILOSEC [Suspect]
     Active Substance: OMEPRAZOLE MAGNESIUM
     Indication: Dyspepsia
     Dosage: FOR VARIOUS DATES AND YEARS
     Route: 048
  5. PRILOSEC [Suspect]
     Active Substance: OMEPRAZOLE MAGNESIUM
     Indication: Dyspepsia
     Route: 048
     Dates: start: 2009, end: 2012
  6. DEXILANT [Suspect]
     Active Substance: DEXLANSOPRAZOLE
     Indication: Dyspepsia
     Dosage: FOR VARIOUS DATES AND YEARS
     Route: 065
  7. DEXILANT [Suspect]
     Active Substance: DEXLANSOPRAZOLE
     Indication: Dyspepsia
     Route: 065
     Dates: start: 2018
  8. LANSOPRAZOLE [Suspect]
     Active Substance: LANSOPRAZOLE
     Indication: Dyspepsia
     Route: 065
     Dates: start: 2017
  9. PANTOPRAZOLE [Suspect]
     Active Substance: PANTOPRAZOLE
     Indication: Dyspepsia
     Dosage: GENERIC
     Route: 065
     Dates: start: 2017, end: 2019
  10. RANITIDINE [Suspect]
     Active Substance: RANITIDINE
     Route: 065
  11. METFORMIN [Concomitant]
     Active Substance: METFORMIN HYDROCHLORIDE
     Indication: Diabetes mellitus
     Dates: start: 2019
  12. JANUVIA [Concomitant]
     Active Substance: SITAGLIPTIN PHOSPHATE
     Indication: Diabetes mellitus
     Dates: start: 2019
  13. LISINOPRIL [Concomitant]
     Active Substance: LISINOPRIL
     Indication: Hypertension
     Dates: start: 2019
  14. ACETAMINOPHEN [Concomitant]
     Active Substance: ACETAMINOPHEN
     Indication: Pain
     Dates: start: 2018
  15. ZANTAC [Concomitant]
     Active Substance: RANITIDINE HYDROCHLORIDE
     Dates: start: 2010, end: 2017
  16. CIMETIDINE [Concomitant]
     Active Substance: CIMETIDINE
     Dates: start: 2012
  17. PEPCID [Concomitant]
     Active Substance: FAMOTIDINE
     Dates: start: 2018
  18. MYLANTA [Concomitant]
     Active Substance: ALUMINUM HYDROXIDE\DIMETHICONE\MAGNESIUM HYDROXIDE
     Dates: start: 2012
  19. ONDANSETRON [Concomitant]
     Active Substance: ONDANSETRON
  20. PROCHLORPERAZINE [Concomitant]
     Active Substance: PROCHLORPERAZINE
  21. SIMETHICONE (DIMETHICONE) [Concomitant]
     Active Substance: DIMETHICONE
  22. ALVIMOPAN [Concomitant]
     Active Substance: ALVIMOPAN
  23. CELECOXIB [Concomitant]
     Active Substance: CELECOXIB
  24. BISACODYL [Concomitant]
     Active Substance: BISACODYL
  25. DOCUSATE [Concomitant]
     Active Substance: DOCUSATE
  26. HEPARIN [Concomitant]
     Active Substance: HEPARIN SODIUM
  27. METOCLOPRAMIDE [Concomitant]
     Active Substance: METOCLOPRAMIDE
  28. ENOXAPARIN [Concomitant]
     Active Substance: ENOXAPARIN
  29. PIPERACILLIN [Concomitant]
     Active Substance: PIPERACILLIN

REACTIONS (3)
  - Chronic kidney disease [Not Recovered/Not Resolved]
  - Renal failure [Not Recovered/Not Resolved]
  - Rebound acid hypersecretion [Unknown]

NARRATIVE: CASE EVENT DATE: 20130101
